FAERS Safety Report 8415033-8 (Version None)
Quarter: 2012Q2

REPORT INFORMATION
  Report Type: 
  Country: None (occurrence: None)
  Receive Date: 20120606
  Receipt Date: 20120525
  Transmission Date: 20120825
  Serious: Yes (Other)
  Sender: FDA-Public Use
  Company Number: CA-JNJFOC-20120519597

PATIENT
  Sex: Female
  Weight: 107 kg

DRUGS (5)
  1. FOLIC ACID [Concomitant]
     Route: 065
  2. REMICADE [Suspect]
     Indication: RHEUMATOID ARTHRITIS
     Route: 042
     Dates: start: 20120118
  3. ACETAMINOPHEN [Concomitant]
     Indication: PREMEDICATION
     Route: 065
  4. METHOTREXATE [Concomitant]
     Route: 065
  5. REMICADE [Suspect]
     Route: 042
     Dates: start: 20120413

REACTIONS (5)
  - FOOT FRACTURE [None]
  - INFUSION RELATED REACTION [None]
  - VISION BLURRED [None]
  - HEADACHE [None]
  - FATIGUE [None]
